FAERS Safety Report 6622285-3 (Version None)
Quarter: 2010Q1

REPORT INFORMATION
  Report Type: 
  Country: None (occurrence: None)
  Receive Date: 20100310
  Receipt Date: 20100223
  Transmission Date: 20100710
  Serious: Yes (Hospitalization)
  Sender: FDA-Public Use
  Company Number: US-ELI_LILLY_AND_COMPANY-US201003000177

PATIENT
  Sex: Female

DRUGS (5)
  1. FORTEO [Suspect]
     Indication: OSTEOPOROSIS
     Dosage: 20 UG, DAILY (1/D)
     Dates: start: 20090101, end: 20100209
  2. FORTEO [Suspect]
     Dosage: 20 UG, DAILY (1/D)
     Dates: start: 20100220
  3. VESICARE [Concomitant]
     Indication: HYPERTONIC BLADDER
  4. PAXIL [Concomitant]
  5. AMBIEN [Concomitant]
     Indication: INSOMNIA

REACTIONS (2)
  - PAIN IN JAW [None]
  - SHOULDER OPERATION [None]
